FAERS Safety Report 26170548 (Version 2)
Quarter: 2025Q4

REPORT INFORMATION
  Report Type: Spontaneous
  Country: EU (occurrence: EU)
  Receive Date: 20251217
  Receipt Date: 20251231
  Transmission Date: 20260117
  Serious: No
  Sender: PFIZER
  Company Number: EU-PFIZER INC-PV202500145969

PATIENT
  Age: 52 Year
  Sex: Male

DRUGS (5)
  1. CARBOPLATIN [Suspect]
     Active Substance: CARBOPLATIN
     Indication: Lung adenocarcinoma stage IV
     Dosage: UNK UNK, CYCLIC (4 CYCLES)
     Dates: start: 202308, end: 202310
  2. PEMETREXED [Concomitant]
     Active Substance: PEMETREXED
     Indication: Lung adenocarcinoma stage IV
     Dosage: UNK UNK, CYCLIC (4 CYCLES)
     Dates: start: 202308, end: 202310
  3. PEMETREXED [Concomitant]
     Active Substance: PEMETREXED
     Dosage: UNK UNK, CYCLIC (3 CYCLES)
     Dates: start: 202310, end: 202312
  4. PEMBROLIZUMAB [Concomitant]
     Active Substance: PEMBROLIZUMAB
     Indication: Lung adenocarcinoma stage IV
     Dosage: UNK UNK, CYCLIC (4 CYCLES)
     Dates: start: 202308, end: 202310
  5. PEMBROLIZUMAB [Concomitant]
     Active Substance: PEMBROLIZUMAB
     Dosage: UNK UNK, CYCLIC (3 CYCLES)
     Dates: start: 202310, end: 202312

REACTIONS (1)
  - Off label use [Unknown]

NARRATIVE: CASE EVENT DATE: 20230801
